FAERS Safety Report 9311026 (Version 1)
Quarter: 2013Q2

REPORT INFORMATION
  Report Type: Spontaneous
  Country: GB (occurrence: GB)
  Receive Date: 20130528
  Receipt Date: 20130528
  Transmission Date: 20140414
  Serious: Yes (Other)
  Sender: FDA-Public Use
  Company Number: GB-TEVA-407000ISR

PATIENT
  Age: 18 Year
  Sex: Female
  Weight: 43.6 kg

DRUGS (5)
  1. TRIMETHOPRIM [Suspect]
     Dates: start: 20130429
  2. CERAZETTE [Concomitant]
     Dates: start: 20121130
  3. CLOTRIMAZOLE [Concomitant]
     Dates: start: 20130215, end: 20130216
  4. CLOBETASONE BUTYRATE [Concomitant]
     Dates: start: 20130316, end: 20130413
  5. FLUCONAZOLE [Concomitant]
     Dates: start: 20130316, end: 20130328

REACTIONS (3)
  - Purpura [Recovering/Resolving]
  - Rash pruritic [Unknown]
  - Lip swelling [Unknown]
